FAERS Safety Report 12653596 (Version 1)
Quarter: 2016Q3

REPORT INFORMATION
  Report Type: Spontaneous
  Country: None (occurrence: FR)
  Receive Date: 20160815
  Receipt Date: 20160815
  Transmission Date: 20161109
  Serious: Yes (Disabling)
  Sender: FDA-Public Use
  Company Number: FR-ALLERGAN-1665554US

PATIENT
  Age: 58 Year
  Sex: Male

DRUGS (1)
  1. DECAPEPTYL LP 22.5MG [Suspect]
     Active Substance: TRIPTORELIN PAMOATE
     Indication: PRODUCT USED FOR UNKNOWN INDICATION
     Dosage: 22.5 MG, UNK
     Route: 030
     Dates: start: 201506

REACTIONS (2)
  - Myositis [Not Recovered/Not Resolved]
  - Gait disturbance [Not Recovered/Not Resolved]
